FAERS Safety Report 25434566 (Version 3)
Quarter: 2025Q3

REPORT INFORMATION
  Report Type: Spontaneous
  Country: US (occurrence: US)
  Receive Date: 20250613
  Receipt Date: 20250818
  Transmission Date: 20251021
  Serious: No
  Sender: SANOFI AVENTIS
  Company Number: US-SA-2025SA168077

PATIENT
  Age: 69 Year
  Sex: Female

DRUGS (3)
  1. DUPIXENT [Suspect]
     Active Substance: DUPILUMAB
     Indication: Asthma
     Dosage: 300 MG, QOW
     Route: 058
     Dates: start: 20250501
  2. DUPIXENT [Suspect]
     Active Substance: DUPILUMAB
     Indication: Eosinophilic pneumonia
     Dosage: 300MG QOW
     Route: 058
     Dates: start: 20250515
  3. DUPIXENT [Suspect]
     Active Substance: DUPILUMAB
     Indication: Sinus disorder

REACTIONS (22)
  - Osteoarthritis [Unknown]
  - Stomatitis [Unknown]
  - Cough [Unknown]
  - Sinus disorder [Unknown]
  - Condition aggravated [Unknown]
  - Seasonal allergy [Unknown]
  - Sleep disorder [Unknown]
  - Sciatica [Recovered/Resolved]
  - Pain [Unknown]
  - Nasal congestion [Unknown]
  - Condition aggravated [Unknown]
  - Pruritus [Unknown]
  - Arthralgia [Recovered/Resolved]
  - Erythema [Unknown]
  - Dry eye [Unknown]
  - Rash [Unknown]
  - Injection site pain [Unknown]
  - Lack of injection site rotation [Unknown]
  - Wrong technique in device usage process [Unknown]
  - Injection site mass [Recovered/Resolved]
  - Injection site rash [Recovered/Resolved]
  - Product use in unapproved indication [Unknown]

NARRATIVE: CASE EVENT DATE: 20250101
